FAERS Safety Report 5379331-7 (Version None)
Quarter: 2007Q3

REPORT INFORMATION
  Report Type: 
  Country: None (occurrence: None)
  Receive Date: 20070705
  Receipt Date: 20070625
  Transmission Date: 20080115
  Serious: Yes (Disabling, Other)
  Sender: FDA-Public Use
  Company Number: FR-PFIZER INC-2005130558

PATIENT
  Sex: Male
  Weight: 82 kg

DRUGS (3)
  1. FELDENE [Suspect]
     Indication: BACK PAIN
     Route: 030
     Dates: start: 20041125, end: 20041130
  2. THIOCOLCHICOSIDE [Concomitant]
     Route: 048
  3. PARACETAMOL [Concomitant]
     Route: 048

REACTIONS (4)
  - INJECTION SITE PAIN [None]
  - MUSCLE SPASMS [None]
  - PARAESTHESIA [None]
  - SCIATICA [None]
